FAERS Safety Report 11844003 (Version 1)
Quarter: 2015Q4

REPORT INFORMATION
  Report Type: Spontaneous
  Country: US (occurrence: None)
  Receive Date: 20151216
  Receipt Date: 20151216
  Transmission Date: 20160305
  Serious: Yes (Hospitalization)
  Sender: FDA-Public Use
  Company Number: None

PATIENT
  Age: 54 Year
  Sex: Female
  Weight: 48.54 kg

DRUGS (9)
  1. PROAIR HFA [Concomitant]
     Active Substance: ALBUTEROL SULFATE
  2. METOPROLOL [Concomitant]
     Active Substance: METOPROLOL
  3. POT CL MICRO ER [Concomitant]
  4. FUROSEMIDE. [Concomitant]
     Active Substance: FUROSEMIDE
  5. CEFDINIR. [Concomitant]
     Active Substance: CEFDINIR
  6. LEVETIRACETA [Concomitant]
  7. BENZONATATE. [Concomitant]
     Active Substance: BENZONATATE
  8. DOXYCYCL HYC [Concomitant]
  9. EXJADE [Suspect]
     Active Substance: DEFERASIROX
     Indication: IRON OVERLOAD
     Route: 048
     Dates: start: 20120611

REACTIONS (1)
  - Cardiac failure congestive [None]

NARRATIVE: CASE EVENT DATE: 201511
